FAERS Safety Report 8582103-3 (Version None)
Quarter: 2012Q3

REPORT INFORMATION
  Report Type: 
  Country: None (occurrence: None)
  Receive Date: 20120809
  Receipt Date: 20120806
  Transmission Date: 20120928
  Serious: Yes (Other)
  Sender: FDA-Public Use
  Company Number: US-ELI_LILLY_AND_COMPANY-US201208001943

PATIENT
  Sex: Male

DRUGS (1)
  1. BYETTA [Suspect]
     Indication: TYPE 2 DIABETES MELLITUS
     Dosage: UNK
     Dates: start: 20060101, end: 20120101

REACTIONS (10)
  - PANCREATITIS [None]
  - SUICIDAL IDEATION [None]
  - ABDOMINAL WALL DISORDER [None]
  - SEXUAL DYSFUNCTION [None]
  - SKIN HAEMORRHAGE [None]
  - GAIT DISTURBANCE [None]
  - ARTHROPATHY [None]
  - WEIGHT INCREASED [None]
  - ASTHENIA [None]
  - WOUND INFECTION STAPHYLOCOCCAL [None]
